FAERS Safety Report 7556466-1 (Version None)
Quarter: 2011Q2

REPORT INFORMATION
  Report Type: 
  Country: None (occurrence: None)
  Receive Date: 20110620
  Receipt Date: 20110523
  Transmission Date: 20111010
  Serious: No
  Sender: FDA-Public Use
  Company Number: US-JNJFOC-20110510417

PATIENT
  Sex: Female
  Weight: 95.26 kg

DRUGS (2)
  1. CELEXA [Concomitant]
     Indication: ANXIETY
     Route: 048
     Dates: start: 20070101
  2. STELARA [Suspect]
     Indication: PSORIASIS
     Route: 058
     Dates: start: 20110301

REACTIONS (3)
  - TONSILLAR NEOPLASM [None]
  - DYSPHAGIA [None]
  - LYMPHADENOPATHY [None]
